FAERS Safety Report 25460686 (Version 3)
Quarter: 2025Q3

REPORT INFORMATION
  Report Type: Spontaneous
  Country: JP (occurrence: JP)
  Receive Date: 20250620
  Receipt Date: 20250725
  Transmission Date: 20251021
  Serious: Yes (Other)
  Sender: NOVARTIS
  Company Number: JP-002147023-NVSJ2025JP006303

PATIENT
  Age: 62 Year
  Sex: Male

DRUGS (26)
  1. NEORAL [Suspect]
     Active Substance: CYCLOSPORINE
     Indication: Dermatitis atopic
     Route: 048
  2. NEORAL [Suspect]
     Active Substance: CYCLOSPORINE
     Indication: Pemphigoid
     Route: 048
  3. NEORAL [Suspect]
     Active Substance: CYCLOSPORINE
     Route: 048
  4. NEORAL [Suspect]
     Active Substance: CYCLOSPORINE
     Route: 048
  5. NEORAL [Suspect]
     Active Substance: CYCLOSPORINE
     Route: 048
  6. NEORAL [Suspect]
     Active Substance: CYCLOSPORINE
     Route: 048
  7. NEORAL [Suspect]
     Active Substance: CYCLOSPORINE
     Route: 048
  8. NEORAL [Suspect]
     Active Substance: CYCLOSPORINE
     Route: 048
  9. PREDNISOLONE [Suspect]
     Active Substance: PREDNISOLONE
     Indication: Pemphigoid
     Route: 065
  10. PREDNISOLONE [Suspect]
     Active Substance: PREDNISOLONE
     Route: 065
  11. PREDNISOLONE [Suspect]
     Active Substance: PREDNISOLONE
     Route: 065
  12. PREDNISOLONE [Suspect]
     Active Substance: PREDNISOLONE
     Route: 065
  13. PREDNISOLONE [Suspect]
     Active Substance: PREDNISOLONE
     Route: 065
  14. IMMUNE GLOBULIN NOS [Concomitant]
     Active Substance: IMMUNE GLOBULIN NOS
     Indication: Pemphigoid
     Route: 065
  15. DUPILUMAB [Concomitant]
     Active Substance: DUPILUMAB
     Indication: Pemphigoid
     Route: 065
  16. DUPILUMAB [Concomitant]
     Active Substance: DUPILUMAB
     Indication: Dermatitis atopic
     Route: 065
  17. DUPILUMAB [Concomitant]
     Active Substance: DUPILUMAB
     Route: 065
  18. DUPILUMAB [Concomitant]
     Active Substance: DUPILUMAB
     Route: 065
  19. DUPILUMAB [Concomitant]
     Active Substance: DUPILUMAB
     Route: 065
  20. DUPILUMAB [Concomitant]
     Active Substance: DUPILUMAB
     Route: 065
  21. DUPILUMAB [Concomitant]
     Active Substance: DUPILUMAB
     Route: 065
  22. DUPILUMAB [Concomitant]
     Active Substance: DUPILUMAB
     Route: 065
  23. DUPILUMAB [Concomitant]
     Active Substance: DUPILUMAB
     Route: 065
  24. METFORMIN HYDROCHLORIDE [Concomitant]
     Active Substance: METFORMIN HYDROCHLORIDE
     Indication: Product used for unknown indication
     Route: 065
  25. VOGLIBOSE [Concomitant]
     Active Substance: VOGLIBOSE
     Indication: Product used for unknown indication
     Route: 065
  26. ROSUVASTATIN CALCIUM [Concomitant]
     Active Substance: ROSUVASTATIN CALCIUM
     Indication: Product used for unknown indication
     Route: 065

REACTIONS (4)
  - Glaucoma [Recovered/Resolved]
  - Cardiac failure [Recovered/Resolved]
  - Hypertension [Recovered/Resolved]
  - Liver disorder [Recovered/Resolved]
